FAERS Safety Report 25118867 (Version 2)
Quarter: 2025Q3

REPORT INFORMATION
  Report Type: Report from Study
  Country: US (occurrence: US)
  Receive Date: 20250325
  Receipt Date: 20250709
  Transmission Date: 20251021
  Serious: Yes (Hospitalization)
  Sender: BAXTER
  Company Number: US-BAXTER-2025BAX012968

PATIENT
  Age: 39 Year
  Sex: Female
  Weight: 59.4 kg

DRUGS (4)
  1. DOXIL [Suspect]
     Active Substance: DOXORUBICIN HYDROCHLORIDE
     Indication: Triple negative breast cancer
     Route: 042
     Dates: start: 20241122, end: 20250124
  2. AVELUMAB [Suspect]
     Active Substance: AVELUMAB
     Indication: Triple negative breast cancer
     Dosage: 617 MG, 617 MG, CYCLIC (ONCE EVERY 2 WEEKS)
     Route: 042
     Dates: start: 20241122, end: 20250207
  3. BINIMETINIB [Suspect]
     Active Substance: BINIMETINIB
     Indication: Triple negative breast cancer
     Dosage: 45 MG, BID, (TWICE A DAY)
     Route: 048
     Dates: start: 20241108, end: 20250221
  4. TRODELVY [Suspect]
     Active Substance: SACITUZUMAB GOVITECAN-HZIY
     Indication: Triple negative breast cancer
     Dosage: 540 MG, QD, ONCE A DAY
     Route: 065
     Dates: start: 20250703, end: 20250703

REACTIONS (1)
  - Platelet count decreased [Recovered/Resolved with Sequelae]

NARRATIVE: CASE EVENT DATE: 20250310
